FAERS Safety Report 6066466-9 (Version None)
Quarter: 2009Q1

REPORT INFORMATION
  Report Type: 
  Country: None (occurrence: None)
  Receive Date: 20090205
  Receipt Date: 20090127
  Transmission Date: 20090719
  Serious: Yes (Death)
  Sender: FDA-Public Use
  Company Number: US-BIOGENIDEC-2008BI034776

PATIENT
  Sex: Female

DRUGS (3)
  1. TYSABRI [Suspect]
     Indication: MULTIPLE SCLEROSIS
     Route: 042
     Dates: start: 20050121
  2. TYSABRI [Suspect]
     Route: 042
     Dates: start: 20060817, end: 20061017
  3. TYSABRI [Suspect]
     Route: 042
     Dates: start: 20070424, end: 20080417

REACTIONS (1)
  - MULTIPLE SCLEROSIS [None]
